FAERS Safety Report 4330423-0 (Version None)
Quarter: 2004Q2

REPORT INFORMATION
  Report Type: 
  Country: None (occurrence: None)
  Receive Date: 20040402
  Receipt Date: 20030623
  Transmission Date: 20050107
  Serious: No
  Sender: FDA-Public Use
  Company Number: US-BRISTOL-MYERS SQUIBB COMPANY-12307971

PATIENT
  Age: 70 Year
  Sex: Male
  Weight: 66 kg

DRUGS (1)
  1. HYDREA [Suspect]
     Indication: PLATELET COUNT INCREASED
     Route: 048
     Dates: start: 20030614, end: 20030620

REACTIONS (4)
  - CONFUSIONAL STATE [None]
  - DISORIENTATION [None]
  - DYSGRAPHIA [None]
  - MEMORY IMPAIRMENT [None]
